FAERS Safety Report 19092996 (Version 4)
Quarter: 2021Q3

REPORT INFORMATION
  Report Type: Spontaneous
  Country: US (occurrence: US)
  Receive Date: 20210405
  Receipt Date: 20210820
  Transmission Date: 20211014
  Serious: Yes (Other)
  Sender: FDA-Public Use
  Company Number: US-SA-2021SA109807

PATIENT
  Age: 66 Year
  Sex: Male

DRUGS (1)
  1. DUPIXENT [Suspect]
     Active Substance: DUPILUMAB
     Indication: ASTHMA
     Dosage: 300 MG, QOW
     Route: 058
     Dates: start: 20210318

REACTIONS (11)
  - Depression [Unknown]
  - Ocular hyperaemia [Unknown]
  - Injection site pruritus [Recovering/Resolving]
  - Gait disturbance [Unknown]
  - Anxiety [Unknown]
  - Vision blurred [Unknown]
  - Blood pressure increased [Unknown]
  - Product use issue [Unknown]
  - Spinal cord disorder [Unknown]
  - Muscular weakness [Unknown]
  - Pain in extremity [Unknown]

NARRATIVE: CASE EVENT DATE: 2021
